FAERS Safety Report 18572417 (Version 1)
Quarter: 2020Q4

REPORT INFORMATION
  Report Type: Spontaneous
  Country: CN (occurrence: CN)
  Receive Date: 20201202
  Receipt Date: 20201202
  Transmission Date: 20210114
  Serious: Yes (Other)
  Sender: FDA-Public Use
  Company Number: CN-AYTU BIOSCIENCES, INC.-2020AYT000277

PATIENT

DRUGS (2)
  1. DABIGATRAN [Suspect]
     Active Substance: DABIGATRAN
     Indication: ANTICOAGULANT THERAPY
     Dosage: 110 MG, Q12H FOR 6 WEEKS
     Route: 048
  2. RABEPRAZOLE SODIUM UNKNOWN [Suspect]
     Active Substance: RABEPRAZOLE SODIUM
     Indication: UPPER GASTROINTESTINAL HAEMORRHAGE
     Dosage: 10 MG, Q12H
     Route: 048

REACTIONS (3)
  - Drug interaction [Recovered/Resolved]
  - Anticoagulation drug level decreased [Recovered/Resolved]
  - Device related thrombosis [Recovered/Resolved]
